FAERS Safety Report 7797675-6 (Version None)
Quarter: 2011Q4

REPORT INFORMATION
  Report Type: 
  Country: None (occurrence: None)
  Receive Date: 20111005
  Receipt Date: 20110923
  Transmission Date: 20120403
  Serious: Yes (Other)
  Sender: FDA-Public Use
  Company Number: PHEH2011US05197

PATIENT
  Sex: Female

DRUGS (1)
  1. GILENYA [Suspect]
     Indication: MULTIPLE SCLEROSIS
     Dosage: 0.5 MG, DAILY
     Route: 048
     Dates: start: 20110211, end: 20110915

REACTIONS (8)
  - MALAISE [None]
  - ASTHENIA [None]
  - SKIN LESION [None]
  - INFLUENZA LIKE ILLNESS [None]
  - LETHARGY [None]
  - KIDNEY INFECTION [None]
  - IMMUNODEFICIENCY [None]
  - RENAL MASS [None]
